FAERS Safety Report 17367237 (Version 1)
Quarter: 2020Q1

REPORT INFORMATION
  Report Type: Spontaneous
  Country: FR (occurrence: FR)
  Receive Date: 20200204
  Receipt Date: 20200204
  Transmission Date: 20200409
  Serious: Yes (Hospitalization)
  Sender: FDA-Public Use
  Company Number: NVSC2020FR027833

PATIENT
  Age: 5 Year
  Sex: Male
  Weight: 21 kg

DRUGS (1)
  1. SKIACOL [Suspect]
     Active Substance: CYCLOPENTOLATE
     Indication: FUNDOSCOPY
     Dosage: 1/12 ML (DROPS)
     Route: 047
     Dates: start: 20200110, end: 20200110

REACTIONS (6)
  - Unevaluable event [Recovered/Resolved]
  - Delirium [Recovered/Resolved]
  - Mydriasis [Recovered/Resolved]
  - Medication error [Recovered/Resolved]
  - Accidental overdose [Recovered/Resolved]
  - Hallucination [Recovered/Resolved]
